FAERS Safety Report 9196145 (Version 1)
Quarter: 2013Q1

REPORT INFORMATION
  Report Type: Spontaneous
  Country: US (occurrence: None)
  Receive Date: 20120703
  Receipt Date: 20120703
  Transmission Date: 20140127
  Serious: No
  Sender: FDA-Public Use
  Company Number: PHEH2011US013143

PATIENT
  Age: 57 Year
  Sex: Male

DRUGS (3)
  1. GILENYA (FTY)CAPSULE,0.5MG [Suspect]
     Indication: MULTIPLE SCLEROSIS
     Route: 048
     Dates: start: 20111222
  2. VIAGRA (SILDENAFIL CITRATE) [Concomitant]
  3. VALIUM (DIAZEPRAM) [Concomitant]

REACTIONS (1)
  - Dysstasia [None]
